FAERS Safety Report 10476546 (Version 2)
Quarter: 2014Q4

REPORT INFORMATION
  Report Type: Spontaneous
  Country: US (occurrence: None)
  Receive Date: 20140923
  Receipt Date: 20141009
  Transmission Date: 20150528
  Serious: Yes (Hospitalization)
  Sender: FDA-Public Use
  Company Number: USW201409-000209

PATIENT
  Age: 72 Year
  Sex: Female
  Weight: 83.91 kg

DRUGS (3)
  1. APOKYN [Suspect]
     Active Substance: APOMORPHINE HYDROCHLORIDE
     Indication: PARKINSON^S DISEASE
     Dates: start: 20140108, end: 20140305
  2. CARBOLEVO (CARBIDOPA, LEVODOPA) [Concomitant]
  3. APOKYN [Suspect]
     Active Substance: APOMORPHINE HYDROCHLORIDE
     Indication: PROGRESSIVE SUPRANUCLEAR PALSY
     Dates: start: 20140108, end: 20140305

REACTIONS (7)
  - Mobility decreased [None]
  - Head injury [None]
  - Feeling abnormal [None]
  - Somnolence [None]
  - Movement disorder [None]
  - Fall [None]
  - Drug effect incomplete [None]

NARRATIVE: CASE EVENT DATE: 20140305
